FAERS Safety Report 9277256 (Version 2)
Quarter: 2013Q2

REPORT INFORMATION
  Report Type: Spontaneous
  Country: DE (occurrence: DE)
  Receive Date: 20130508
  Receipt Date: 20130625
  Transmission Date: 20140414
  Serious: Yes (Other)
  Sender: FDA-Public Use
  Company Number: DE-ROCHE-1222075

PATIENT
  Age: 23 Year
  Sex: Female
  Weight: 45 kg

DRUGS (3)
  1. VALCYTE [Suspect]
     Indication: CYTOMEGALOVIRUS INFECTION
     Route: 048
     Dates: start: 20120925, end: 20121001
  2. GANCICLOVIR SODIUM [Suspect]
     Indication: CYTOMEGALOVIRUS INFECTION
     Route: 065
  3. TACROLIMUS [Concomitant]
     Indication: LIVER TRANSPLANT
     Route: 048
     Dates: start: 201212

REACTIONS (2)
  - Retinal vein thrombosis [Recovered/Resolved with Sequelae]
  - Macular oedema [Unknown]
